FAERS Safety Report 9092130 (Version 1)
Quarter: 2013Q1

REPORT INFORMATION
  Report Type: Report from Study
  Country: US (occurrence: US)
  Receive Date: 20130131
  Receipt Date: 20130131
  Transmission Date: 20140127
  Serious: No
  Sender: FDA-Public Use
  Company Number: US-ABBOTT-12P-163-0990655-00

PATIENT
  Age: 54 None
  Sex: Male
  Weight: 60.84 kg

DRUGS (1)
  1. HUMIRA [Suspect]
     Indication: PSORIATIC ARTHROPATHY
     Dates: start: 20120910

REACTIONS (5)
  - Injury [Recovering/Resolving]
  - Contusion [Recovering/Resolving]
  - Excoriation [Recovering/Resolving]
  - Excoriation [Recovering/Resolving]
  - Vision blurred [Recovered/Resolved]
